FAERS Safety Report 11879447 (Version 1)
Quarter: 2015Q4

REPORT INFORMATION
  Report Type: Spontaneous
  Country: PL (occurrence: PL)
  Receive Date: 20151230
  Receipt Date: 20151230
  Transmission Date: 20160305
  Serious: Yes (Other)
  Sender: FDA-Public Use
  Company Number: PL-BAYER-2015-486529

PATIENT
  Age: 40 Year
  Sex: Female
  Weight: 66 kg

DRUGS (1)
  1. MIRENA [Suspect]
     Active Substance: LEVONORGESTREL
     Indication: CONTRACEPTION
     Dosage: 20 MCG/24HR, CONT
     Route: 015
     Dates: start: 20131216, end: 20151216

REACTIONS (5)
  - Ectopic pregnancy with contraceptive device [None]
  - Ruptured ectopic pregnancy [None]
  - Haemorrhage in pregnancy [None]
  - Drug ineffective [None]
  - Vaginal haemorrhage [None]

NARRATIVE: CASE EVENT DATE: 2015
